FAERS Safety Report 15591465 (Version 3)
Quarter: 2018Q4

REPORT INFORMATION
  Report Type: Spontaneous
  Country: US (occurrence: US)
  Receive Date: 20181106
  Receipt Date: 20181226
  Transmission Date: 20190205
  Serious: No
  Sender: FDA-Public Use
  Company Number: US-PFIZER INC-2018441799

PATIENT
  Age: 84 Year
  Sex: Female

DRUGS (10)
  1. DEPO-MEDROL [Suspect]
     Active Substance: METHYLPREDNISOLONE ACETATE
     Indication: ARTHROPATHY
     Dosage: UNK
     Route: 048
  2. DEPO-MEDROL [Suspect]
     Active Substance: METHYLPREDNISOLONE ACETATE
     Indication: OSTEOARTHRITIS
  3. DEPO-MEDROL [Suspect]
     Active Substance: METHYLPREDNISOLONE ACETATE
     Indication: BURSITIS
  4. CELESTONE [BETAMETHASONE] [Suspect]
     Active Substance: BETAMETHASONE
     Indication: ARTHROPATHY
     Dosage: UNK
  5. CELESTONE [BETAMETHASONE] [Suspect]
     Active Substance: BETAMETHASONE
     Indication: TENDONITIS
  6. CELESTONE [BETAMETHASONE] [Suspect]
     Active Substance: BETAMETHASONE
     Indication: OSTEOARTHRITIS
  7. LEVAQUIN [Suspect]
     Active Substance: LEVOFLOXACIN
     Dosage: UNK
  8. DEPO-MEDROL [Suspect]
     Active Substance: METHYLPREDNISOLONE ACETATE
     Indication: TENDONITIS
  9. CELESTONE [BETAMETHASONE] [Suspect]
     Active Substance: BETAMETHASONE
     Indication: BURSITIS
  10. FORTEO [Suspect]
     Active Substance: TERIPARATIDE
     Dosage: UNK

REACTIONS (6)
  - Blood pressure abnormal [Recovered/Resolved]
  - Disease recurrence [Not Recovered/Not Resolved]
  - Gastrooesophageal reflux disease [Not Recovered/Not Resolved]
  - Hypertension [Not Recovered/Not Resolved]
  - Joint swelling [Not Recovered/Not Resolved]
  - Peripheral swelling [Not Recovered/Not Resolved]
